FAERS Safety Report 5727866-7 (Version None)
Quarter: 2008Q2

REPORT INFORMATION
  Report Type: 
  Country: None (occurrence: None)
  Receive Date: 20080430
  Receipt Date: 20080417
  Transmission Date: 20081010
  Serious: Yes (Hospitalization)
  Sender: FDA-Public Use
  Company Number: 2008BI010376

PATIENT
  Age: 41 Year
  Weight: 113.3993 kg

DRUGS (1)
  1. TYSABRI [Suspect]
     Indication: MULTIPLE SCLEROSIS
     Dosage: 200 MG;QM;IV
     Route: 042
     Dates: start: 20061025

REACTIONS (1)
  - SURGERY [None]
